FAERS Safety Report 5450182-8 (Version None)
Quarter: 2007Q3

REPORT INFORMATION
  Report Type: 
  Country: None (occurrence: None)
  Receive Date: 20070912
  Receipt Date: 20070904
  Transmission Date: 20080115
  Serious: Yes (Other)
  Sender: FDA-Public Use
  Company Number: PHHO2007BR14608

PATIENT
  Age: 60 Year
  Sex: Female

DRUGS (2)
  1. OLCADIL [Concomitant]
     Dosage: 2 MG, PRN
     Route: 048
  2. VALSARTAN [Suspect]
     Dosage: 1 TABLET, QD

REACTIONS (2)
  - BLOOD PRESSURE FLUCTUATION [None]
  - MALAISE [None]
